FAERS Safety Report 6287040-5 (Version None)
Quarter: 2009Q3

REPORT INFORMATION
  Report Type: 
  Country: None (occurrence: None)
  Receive Date: 20090728
  Receipt Date: 20090720
  Transmission Date: 20100115
  Serious: Yes (Hospitalization)
  Sender: FDA-Public Use
  Company Number: AU-PURDUE-USA-2009-0039224

PATIENT
  Sex: Female

DRUGS (5)
  1. MORPHINE SULFATE (SIMILAR TO NDA 19-516) [Suspect]
     Indication: PAIN MANAGEMENT
  2. ASPIRIN [Concomitant]
  3. IMDUR [Concomitant]
  4. PLAVIX [Concomitant]
     Dosage: UNK
     Dates: start: 20080923, end: 20090501
  5. LEVOTHYROXINE SODIUM [Concomitant]

REACTIONS (4)
  - DECREASED APPETITE [None]
  - NAUSEA [None]
  - VOMITING [None]
  - WEIGHT DECREASED [None]
